FAERS Safety Report 7939410-4 (Version None)
Quarter: 2011Q4

REPORT INFORMATION
  Report Type: 
  Country: None (occurrence: None)
  Receive Date: 20111125
  Receipt Date: 20111118
  Transmission Date: 20120403
  Serious: Yes (Other)
  Sender: FDA-Public Use
  Company Number: US-ROCHE-791162

PATIENT
  Sex: Male
  Weight: 67.192 kg

DRUGS (2)
  1. ACCUTANE [Suspect]
     Indication: ACNE
     Route: 065
     Dates: start: 19950101, end: 19950401
  2. ACCUTANE [Suspect]
     Dates: start: 19970101, end: 19980101

REACTIONS (7)
  - CROHN'S DISEASE [None]
  - INFLAMMATORY BOWEL DISEASE [None]
  - ANAL FISTULA [None]
  - IRRITABLE BOWEL SYNDROME [None]
  - COLITIS [None]
  - ANXIETY [None]
  - HAEMORRHOIDS [None]
